FAERS Safety Report 9293553 (Version 2)
Quarter: 2013Q3

REPORT INFORMATION
  Report Type: Spontaneous
  Country: JP (occurrence: JP)
  Receive Date: 20130516
  Receipt Date: 20130923
  Transmission Date: 20140515
  Serious: Yes (Other)
  Sender: FDA-Public Use
  Company Number: JP-PFIZER INC-2013145942

PATIENT
  Age: 31 Year
  Sex: Male

DRUGS (3)
  1. AZULFIDINE EN [Suspect]
     Dosage: UNK
     Route: 048
     Dates: start: 201204, end: 201205
  2. MINOMYCIN [Suspect]
     Dosage: UNK
     Route: 048
     Dates: start: 201204, end: 201205
  3. METHOTREXATE SODIUM [Suspect]
     Indication: RHEUMATOID ARTHRITIS

REACTIONS (1)
  - Drug-induced liver injury [Recovered/Resolved]
